FAERS Safety Report 18162128 (Version 1)
Quarter: 2020Q3

REPORT INFORMATION
  Report Type: Spontaneous
  Country: US (occurrence: US)
  Receive Date: 20200818
  Receipt Date: 20200818
  Transmission Date: 20201103
  Serious: Yes (Other)
  Sender: FDA-Public Use
  Company Number: None

PATIENT
  Sex: Male

DRUGS (2)
  1. PROAIR HFA [Suspect]
     Active Substance: ALBUTEROL SULFATE
  2. ALBUTEROL 1.25MG/3ML NEB [Suspect]
     Active Substance: ALBUTEROL SULFATE

REACTIONS (1)
  - Drug ineffective [None]
